FAERS Safety Report 7440302-8 (Version None)
Quarter: 2011Q2

REPORT INFORMATION
  Report Type: 
  Country: None (occurrence: None)
  Receive Date: 20110427
  Receipt Date: 20101201
  Transmission Date: 20111010
  Serious: Yes (Life-Threatening)
  Sender: FDA-Public Use
  Company Number: GXKR2010NL13642

PATIENT
  Age: 65 Year
  Sex: Male
  Weight: 103 kg

DRUGS (5)
  1. ANTIOXIDANTS [Concomitant]
     Route: 065
  2. ASPIRIN [Concomitant]
     Dosage: 1 DF, QD
     Route: 065
  3. ENALAPRIL MALEATE [Suspect]
     Indication: CARDIOVASCULAR DISORDER
     Dosage: 1 DF, QD
     Route: 048
     Dates: start: 20100817, end: 20101101
  4. HYDROXYCARBAMIDE [Concomitant]
     Dosage: 1 DF, QD
     Route: 065
  5. METFORMIN [Concomitant]
     Dosage: UNK
     Route: 065

REACTIONS (1)
  - TOXICITY TO VARIOUS AGENTS [None]
